FAERS Safety Report 11402783 (Version 1)
Quarter: 2015Q3

REPORT INFORMATION
  Report Type: Spontaneous
  Country: US (occurrence: US)
  Receive Date: 20150821
  Receipt Date: 20150821
  Transmission Date: 20151125
  Serious: No
  Sender: FDA-Public Use
  Company Number: US-ROCHE-1283219

PATIENT
  Age: 54 Year
  Sex: Female

DRUGS (2)
  1. RIBAVIRIN. [Suspect]
     Active Substance: RIBAVIRIN
     Indication: CHRONIC HEPATITIS C
     Dosage: 400/400 DIVIDED DOSES
     Route: 048
     Dates: start: 20130719
  2. PEGASYS [Suspect]
     Active Substance: PEGINTERFERON ALFA-2A
     Indication: CHRONIC HEPATITIS C
     Route: 058
     Dates: start: 20130719

REACTIONS (8)
  - Weight decreased [Unknown]
  - Insomnia [Unknown]
  - Platelet count decreased [Unknown]
  - Injection site bruising [Unknown]
  - Blood calcium increased [Unknown]
  - Memory impairment [Unknown]
  - Nausea [Unknown]
  - Mood swings [Unknown]

NARRATIVE: CASE EVENT DATE: 20130916
